FAERS Safety Report 23123384 (Version 1)
Quarter: 2023Q4

REPORT INFORMATION
  Report Type: Spontaneous
  Country: CA (occurrence: None)
  Receive Date: 20231030
  Receipt Date: 20231030
  Transmission Date: 20240109
  Serious: Yes (Hospitalization)
  Sender: FDA-Public Use
  Company Number: CA-ROCHE-3444777

PATIENT
  Age: 41 Year
  Sex: Female

DRUGS (18)
  1. DIAZEPAM [Suspect]
     Active Substance: DIAZEPAM
     Indication: Anxiety
     Route: 065
  2. OMALIZUMAB [Suspect]
     Active Substance: OMALIZUMAB
     Indication: Angioedema
     Route: 058
  3. TRAMADOL [Suspect]
     Active Substance: TRAMADOL\TRAMADOL HYDROCHLORIDE
     Indication: Pain
     Route: 065
  4. ZOPICLONE [Suspect]
     Active Substance: ZOPICLONE
     Indication: Insomnia
     Route: 065
  5. ACETAMINOPHEN [Concomitant]
     Active Substance: ACETAMINOPHEN
  6. ALVESCO [Concomitant]
     Active Substance: CICLESONIDE
  7. AMLODIPINE BESYLATE [Concomitant]
     Active Substance: AMLODIPINE BESYLATE
  8. BENADRYL [Concomitant]
     Active Substance: DIPHENHYDRAMINE HYDROCHLORIDE
  9. CYCLOBENZAPRINE [Concomitant]
     Active Substance: CYCLOBENZAPRINE
  10. DESOXIMETASONE [Concomitant]
     Active Substance: DESOXIMETASONE
  11. DILAUDID [Concomitant]
     Active Substance: HYDROMORPHONE HYDROCHLORIDE
  12. ISOPTIN [Concomitant]
     Active Substance: VERAPAMIL HYDROCHLORIDE
  13. LEVAQUIN [Concomitant]
     Active Substance: LEVOFLOXACIN
  14. MESALAMINE [Concomitant]
     Active Substance: MESALAMINE
  15. PANTOPRAZOLE [Concomitant]
     Active Substance: PANTOPRAZOLE
  16. PREDNISONE [Concomitant]
     Active Substance: PREDNISONE
  17. CETIRIZINE HYDROCHLORIDE [Concomitant]
     Active Substance: CETIRIZINE HYDROCHLORIDE
  18. VALACYCLOVIR HYDROCHLORIDE [Concomitant]
     Active Substance: VALACYCLOVIR HYDROCHLORIDE

REACTIONS (11)
  - Angioedema [Unknown]
  - Arthralgia [Unknown]
  - Asthenia [Unknown]
  - Cryopyrin associated periodic syndrome [Unknown]
  - Dysphonia [Unknown]
  - Fatigue [Unknown]
  - Headache [Unknown]
  - Hypersensitivity [Unknown]
  - Malaise [Unknown]
  - Swelling face [Unknown]
  - Swollen tongue [Unknown]
